FAERS Safety Report 4979115-5 (Version None)
Quarter: 2006Q2

REPORT INFORMATION
  Report Type: 
  Country: None (occurrence: None)
  Receive Date: 20060421
  Receipt Date: 20060410
  Transmission Date: 20061013
  Serious: Yes (Hospitalization)
  Sender: FDA-Public Use
  Company Number: CH-JNJFOC-20060402094

PATIENT
  Age: 64 Year
  Sex: Male

DRUGS (5)
  1. DURAGESIC-100 [Suspect]
     Route: 062
  2. DURAGESIC-100 [Suspect]
     Indication: PAIN
     Route: 062
  3. TEGRETOL [Interacting]
     Indication: PAIN
     Route: 048
  4. MEFENACID [Suspect]
     Indication: PAIN
     Route: 048
  5. DEXAMETHASONE [Suspect]
     Indication: PAIN
     Route: 048

REACTIONS (6)
  - ASTHENIA [None]
  - CONFUSIONAL STATE [None]
  - DRUG INEFFECTIVE [None]
  - DRUG INTERACTION [None]
  - DRUG TOXICITY [None]
  - PAIN [None]
